FAERS Safety Report 10268103 (Version 1)
Quarter: 2014Q2

REPORT INFORMATION
  Report Type: Spontaneous
  Country: US (occurrence: None)
  Receive Date: 20140626
  Receipt Date: 20140626
  Transmission Date: 20141212
  Serious: Yes (Other)
  Sender: FDA-Public Use
  Company Number: None

PATIENT
  Age: 54 Year
  Sex: Female

DRUGS (3)
  1. TRAVATAN Z [Suspect]
     Indication: OPEN ANGLE GLAUCOMA
  2. ALPHAGAN [Concomitant]
  3. COSOPT [Concomitant]

REACTIONS (2)
  - Product substitution issue [None]
  - Drug effect decreased [None]
